FAERS Safety Report 12687829 (Version 1)
Quarter: 2016Q3

REPORT INFORMATION
  Report Type: Spontaneous
  Country: US (occurrence: US)
  Receive Date: 20160826
  Receipt Date: 20160826
  Transmission Date: 20161109
  Serious: No
  Sender: FDA-Public Use
  Company Number: US-TEVA-681873ACC

PATIENT
  Sex: Female
  Weight: 104.42 kg

DRUGS (1)
  1. PARAGARD T 380A [Suspect]
     Active Substance: COPPER
     Indication: CONTRACEPTION
     Dates: start: 20160617, end: 20160729

REACTIONS (3)
  - Exposure during breast feeding [Unknown]
  - Muscle spasms [Unknown]
  - Device expulsion [Recovered/Resolved]
